FAERS Safety Report 10383618 (Version 2)
Quarter: 2014Q3

REPORT INFORMATION
  Report Type: Spontaneous
  Country: US (occurrence: US)
  Receive Date: 20140814
  Receipt Date: 20140910
  Transmission Date: 20150326
  Serious: Yes (Other)
  Sender: FDA-Public Use
  Company Number: US-BRISTOL-MYERS SQUIBB COMPANY-21289947

PATIENT
  Sex: Male

DRUGS (3)
  1. ABILIFY [Suspect]
     Active Substance: ARIPIPRAZOLE
     Indication: SCHIZOPHRENIA
     Route: 048
     Dates: start: 2014, end: 201407
  2. RISPERDAL CONSTA [Concomitant]
     Active Substance: RISPERIDONE
  3. ABILIFY MAINTENA [Suspect]
     Active Substance: ARIPIPRAZOLE
     Indication: SCHIZOPHRENIA
     Dosage: SUSPENSION FOR INJECTION
     Route: 030
     Dates: start: 201407, end: 2014

REACTIONS (2)
  - Hallucination, auditory [Unknown]
  - Schizophrenia [Unknown]

NARRATIVE: CASE EVENT DATE: 201407
